FAERS Safety Report 6062303-7 (Version None)
Quarter: 2009Q1

REPORT INFORMATION
  Report Type: 
  Country: None (occurrence: None)
  Receive Date: 20090203
  Receipt Date: 20090121
  Transmission Date: 20090719
  Serious: Yes (Death)
  Sender: FDA-Public Use
  Company Number: US-JNJFOC-20090106595

PATIENT
  Sex: Male
  Weight: 100.25 kg

DRUGS (16)
  1. DURAGESIC-100 [Suspect]
     Indication: DRUG USE FOR UNKNOWN INDICATION
     Route: 065
  2. DURAGESIC-100 [Suspect]
     Indication: DRUG USE FOR UNKNOWN INDICATION
     Route: 065
  3. NORTRIPTYLINE HCL [Suspect]
     Indication: DRUG USE FOR UNKNOWN INDICATION
     Route: 065
  4. BUPROPION HCL [Suspect]
     Indication: DRUG USE FOR UNKNOWN INDICATION
     Route: 065
  5. ALPRAZOLAM [Suspect]
     Indication: DRUG USE FOR UNKNOWN INDICATION
     Route: 065
  6. ALCOHOL [Suspect]
     Indication: DRUG USE FOR UNKNOWN INDICATION
     Route: 065
  7. LIBRIUM [Concomitant]
     Route: 065
  8. LORTAB [Concomitant]
     Route: 065
  9. QUINDAL [Concomitant]
     Route: 065
  10. CLARITIN [Concomitant]
     Route: 065
  11. PRILOSEC [Concomitant]
     Route: 065
  12. EPHEDRINE [Concomitant]
  13. PSEUDOEPHEDRINE HCL [Concomitant]
  14. BENZODIAZEPINES [Concomitant]
  15. OPIATES [Concomitant]
  16. STIMULANTS [Concomitant]

REACTIONS (10)
  - ACCIDENTAL DEATH [None]
  - ALCOHOL POISONING [None]
  - ANALGESIC DRUG LEVEL INCREASED [None]
  - CONGESTIVE CARDIOMYOPATHY [None]
  - DRUG TOXICITY [None]
  - GLYCOGEN STORAGE DISEASE TYPE VIII [None]
  - LOSS OF CONSCIOUSNESS [None]
  - MYOCARDIAL FIBROSIS [None]
  - PHLEBOSCLEROSIS [None]
  - PULMONARY OEDEMA [None]
